FAERS Safety Report 15580262 (Version 2)
Quarter: 2018Q4

REPORT INFORMATION
  Report Type: Spontaneous
  Country: DE (occurrence: DE)
  Receive Date: 20181102
  Receipt Date: 20181107
  Transmission Date: 20190205
  Serious: Yes (Other)
  Sender: FDA-Public Use
  Company Number: DE-PFIZER INC-2018442040

PATIENT
  Age: 70 Year
  Sex: Male

DRUGS (1)
  1. SORTIS [Suspect]
     Active Substance: ATORVASTATIN
     Indication: ARTERIAL DISORDER
     Dosage: UNK

REACTIONS (3)
  - Polyneuropathy [Unknown]
  - Condition aggravated [Unknown]
  - Pain [Unknown]
